FAERS Safety Report 25478416 (Version 1)
Quarter: 2025Q2

REPORT INFORMATION
  Report Type: Spontaneous
  Country: FR (occurrence: FR)
  Receive Date: 20250625
  Receipt Date: 20250625
  Transmission Date: 20250717
  Serious: Yes (Hospitalization)
  Sender: FRESENIUS KABI
  Company Number: None

PATIENT
  Age: 22 Year
  Sex: Female

DRUGS (5)
  1. FLUCONAZOLE [Suspect]
     Active Substance: FLUCONAZOLE
     Indication: Antifungal prophylaxis
     Route: 042
     Dates: start: 20250318, end: 20250321
  2. MORPHINE [Suspect]
     Active Substance: MORPHINE
     Indication: Analgesic intervention supportive therapy
     Route: 048
     Dates: start: 20250317, end: 20250318
  3. MORPHINE [Suspect]
     Active Substance: MORPHINE
     Route: 042
     Dates: start: 20250317, end: 20250318
  4. PIPERACILLIN SODIUM\TAZOBACTAM SODIUM [Suspect]
     Active Substance: PIPERACILLIN SODIUM\TAZOBACTAM SODIUM
     Indication: Febrile bone marrow aplasia
     Route: 042
     Dates: start: 20250317, end: 20250321
  5. OXYCODONE [Suspect]
     Active Substance: OXYCODONE
     Indication: Analgesic intervention supportive therapy
     Route: 042
     Dates: start: 20250318, end: 20250323

REACTIONS (1)
  - Urticaria [Recovering/Resolving]

NARRATIVE: CASE EVENT DATE: 20250318
